FAERS Safety Report 10035953 (Version 1)
Quarter: 2014Q1

REPORT INFORMATION
  Report Type: Spontaneous
  Country: US (occurrence: US)
  Receive Date: 20140325
  Receipt Date: 20140325
  Transmission Date: 20141002
  Serious: Yes (Other)
  Sender: FDA-Public Use
  Company Number: US-CUBIST PHARMACEUTICAL, INC.-2014CBST000426

PATIENT
  Sex: 0

DRUGS (8)
  1. CUBICIN [Suspect]
     Indication: STAPHYLOCOCCAL BACTERAEMIA
     Dosage: 6 MG/KG, Q24H
     Route: 042
     Dates: start: 201103
  2. CUBICIN [Suspect]
     Dosage: 6 MG/KG, Q24H
     Route: 065
     Dates: start: 201103
  3. CUBICIN [Suspect]
     Dosage: 8 MG/KG, Q24H
     Route: 065
  4. CUBICIN [Suspect]
     Dosage: 8 MG/KG, Q24H
     Route: 065
  5. NAFCILLIN [Concomitant]
     Indication: STAPHYLOCOCCAL BACTERAEMIA
     Dosage: 2 G, Q4H
     Route: 065
     Dates: start: 201109
  6. NAFCILLIN [Concomitant]
     Indication: ENDOCARDITIS
  7. GENTAMICIN                         /00047102/ [Concomitant]
     Indication: STAPHYLOCOCCAL BACTERAEMIA
     Dosage: 60 MG, Q8H
     Route: 065
     Dates: start: 201109
  8. GENTAMICIN                         /00047102/ [Concomitant]
     Indication: ENDOCARDITIS

REACTIONS (3)
  - Endocarditis staphylococcal [Recovered/Resolved]
  - Staphylococcal bacteraemia [Recovered/Resolved]
  - Treatment failure [Unknown]
